FAERS Safety Report 9780586 (Version 2)
Quarter: 2014Q1

REPORT INFORMATION
  Report Type: Spontaneous
  Country: AR (occurrence: AR)
  Receive Date: 20131224
  Receipt Date: 20140124
  Transmission Date: 20141002
  Serious: Yes (Other)
  Sender: FDA-Public Use
  Company Number: AR-AMGEN-ARGSP2013090233

PATIENT
  Age: 72 Year
  Sex: Female

DRUGS (3)
  1. ENBREL [Suspect]
     Indication: PSORIASIS
     Dosage: 50 MG, EVERY 15 DAYS
     Route: 058
     Dates: start: 20080204, end: 201209
  2. ASPIRINETAS [Concomitant]
     Dosage: UNK
  3. VALSARTAN [Concomitant]
     Dosage: UNK

REACTIONS (3)
  - Ovarian cancer [Recovered/Resolved]
  - Metastases to lymph nodes [Not Recovered/Not Resolved]
  - Psoriasis [Recovered/Resolved]
